APPROVED DRUG PRODUCT: LEVOTHYROXINE SODIUM
Active Ingredient: LEVOTHYROXINE SODIUM
Strength: 0.3MG
Dosage Form/Route: TABLET;ORAL
Application: A216414 | Product #005
Applicant: AUROBINDO PHARMA LTD
Approved: Jul 16, 2024 | RLD: No | RS: No | Type: DISCN